FAERS Safety Report 21145545 (Version 1)
Quarter: 2022Q3

REPORT INFORMATION
  Report Type: Spontaneous
  Country: US (occurrence: US)
  Receive Date: 20220729
  Receipt Date: 20220729
  Transmission Date: 20221027
  Serious: Yes (Hospitalization, Other)
  Sender: FDA-Public Use
  Company Number: US-SANOFI-01202618

PATIENT
  Age: 50 Year
  Sex: Male
  Weight: 88.4 kg

DRUGS (3)
  1. BISACODYL [Suspect]
     Active Substance: BISACODYL
     Indication: Colonoscopy
     Dosage: 4 DF, QD
  2. BISACODYL [Suspect]
     Active Substance: BISACODYL
     Indication: Endoscopy
  3. MAGNESIUM CITRATE [Suspect]
     Active Substance: MAGNESIUM CITRATE
     Indication: Colonoscopy
     Dosage: 1.5 DF, QD
     Dates: start: 20220608, end: 20220608

REACTIONS (11)
  - Aspiration [Recovered/Resolved]
  - Dehydration [Recovered/Resolved]
  - Oxygen saturation decreased [Recovered/Resolved]
  - Intestinal ulcer [Not Recovered/Not Resolved]
  - Gastric ulcer [Not Recovered/Not Resolved]
  - Dyspnoea [Recovered/Resolved]
  - Hyperhidrosis [Recovered/Resolved]
  - Feeling cold [Recovered/Resolved]
  - Gastrointestinal bacterial infection [Recovered/Resolved]
  - Cold sweat [Recovered/Resolved]
  - Helicobacter infection [Unknown]

NARRATIVE: CASE EVENT DATE: 20220608
